FAERS Safety Report 8165108-6 (Version None)
Quarter: 2012Q1

REPORT INFORMATION
  Report Type: 
  Country: None (occurrence: None)
  Receive Date: 20120227
  Receipt Date: 20120214
  Transmission Date: 20120608
  Serious: Yes (Hospitalization, Other)
  Sender: FDA-Public Use
  Company Number: US-AMGEN-USASP2012010163

PATIENT
  Age: 51 Year
  Sex: Male

DRUGS (1)
  1. ENBREL [Suspect]
     Indication: PSORIASIS
     Dosage: 50 MG, 2 TIMES/WK
     Dates: start: 20051002

REACTIONS (9)
  - THROMBOPHLEBITIS SUPERFICIAL [None]
  - SPINAL COLUMN STENOSIS [None]
  - POLYCYTHAEMIA [None]
  - SPLENOMEGALY [None]
  - LYMPHADENOPATHY [None]
  - DEEP VEIN THROMBOSIS [None]
  - CELLULITIS [None]
  - LUNG NEOPLASM [None]
  - SPINAL COMPRESSION FRACTURE [None]
